FAERS Safety Report 13940101 (Version 1)
Quarter: 2017Q3

REPORT INFORMATION
  Report Type: Report from Study
  Country: US (occurrence: US)
  Receive Date: 20170906
  Receipt Date: 20170906
  Transmission Date: 20171127
  Serious: Yes (Death, Hospitalization, Other)
  Sender: FDA-Public Use
  Company Number: US-ASTRAZENECA-2016SE27458

PATIENT
  Age: 21589 Day
  Sex: Female

DRUGS (16)
  1. TAGRISSO [Suspect]
     Active Substance: OSIMERTINIB
     Indication: LUNG CARCINOMA CELL TYPE UNSPECIFIED STAGE 0
     Route: 048
     Dates: start: 20160224
  2. TAGRISSO [Suspect]
     Active Substance: OSIMERTINIB
     Indication: NON-SMALL CELL LUNG CANCER
     Route: 048
     Dates: start: 20161017
  3. KEPPRA [Concomitant]
     Active Substance: LEVETIRACETAM
  4. VITAMIN B12 [Concomitant]
     Active Substance: CYANOCOBALAMIN
  5. TAGRISSO [Suspect]
     Active Substance: OSIMERTINIB
     Indication: BRAIN NEOPLASM MALIGNANT
     Route: 048
     Dates: start: 20160224
  6. VITAMIN D [Concomitant]
     Active Substance: CHOLECALCIFEROL
  7. TAGRISSO [Suspect]
     Active Substance: OSIMERTINIB
     Indication: MALIGNANT NEOPLASM OF SPINAL CORD
     Route: 048
     Dates: start: 20160224
  8. TAGRISSO [Suspect]
     Active Substance: OSIMERTINIB
     Indication: NON-SMALL CELL LUNG CANCER
     Route: 048
     Dates: start: 20160224
  9. TAGRISSO [Suspect]
     Active Substance: OSIMERTINIB
     Indication: LUNG CARCINOMA CELL TYPE UNSPECIFIED STAGE 0
     Route: 048
     Dates: start: 20160224
  10. TAGRISSO [Suspect]
     Active Substance: OSIMERTINIB
     Indication: LUNG CARCINOMA CELL TYPE UNSPECIFIED STAGE 0
     Route: 048
     Dates: start: 20161017
  11. TAGRISSO [Suspect]
     Active Substance: OSIMERTINIB
     Indication: MALIGNANT NEOPLASM OF SPINAL CORD
     Route: 048
     Dates: start: 20161017
  12. TAGRISSO [Suspect]
     Active Substance: OSIMERTINIB
     Indication: LUNG CARCINOMA CELL TYPE UNSPECIFIED STAGE 0
     Route: 048
     Dates: start: 20161017
  13. MAGNESIUM OXIDE. [Concomitant]
     Active Substance: MAGNESIUM OXIDE
  14. TAGRISSO [Suspect]
     Active Substance: OSIMERTINIB
     Indication: BRAIN NEOPLASM MALIGNANT
     Route: 048
     Dates: start: 20161017
  15. FLONASE [Concomitant]
     Active Substance: FLUTICASONE PROPIONATE
  16. VITAMINC C [Concomitant]

REACTIONS (11)
  - Death [Fatal]
  - Seizure [Unknown]
  - Vertigo [Unknown]
  - Rhinorrhoea [Unknown]
  - Decreased appetite [Unknown]
  - Dehydration [Unknown]
  - Anaemia [Not Recovered/Not Resolved]
  - Cough [Unknown]
  - Dysphagia [Recovered/Resolved]
  - Dysphonia [Unknown]
  - Eructation [Unknown]

NARRATIVE: CASE EVENT DATE: 20160224
